FAERS Safety Report 5521032-6 (Version None)
Quarter: 2007Q4

REPORT INFORMATION
  Report Type: 
  Country: None (occurrence: None)
  Receive Date: 20071119
  Receipt Date: 20071109
  Transmission Date: 20080405
  Serious: Yes (Death)
  Sender: FDA-Public Use
  Company Number: NZ-PURDUE-USA_2007_0030137

PATIENT
  Age: 75 Year
  Sex: Female

DRUGS (1)
  1. OXYCONTIN [Suspect]
     Indication: BACK PAIN
     Route: 048
     Dates: start: 20070801, end: 20070801

REACTIONS (3)
  - DEATH [None]
  - RESTLESS LEGS SYNDROME [None]
  - TREMOR [None]
